FAERS Safety Report 4383791-8 (Version None)
Quarter: 2004Q2

REPORT INFORMATION
  Report Type: 
  Country: None (occurrence: None)
  Receive Date: 20040608
  Receipt Date: 20031006
  Transmission Date: 20050107
  Serious: Yes (Other)
  Sender: FDA-Public Use
  Company Number: 200313646BCC

PATIENT
  Age: 33 Year
  Sex: Female
  Weight: 102.0593 kg

DRUGS (2)
  1. ALEVE [Suspect]
     Indication: HEADACHE
     Dosage: 440 MG, QD, ORAL
     Route: 048
     Dates: start: 20031006
  2. SOMA [Concomitant]

REACTIONS (7)
  - ASTHMA [None]
  - DYSPHAGIA [None]
  - HYPERSENSITIVITY [None]
  - PRURITUS [None]
  - SWELLING FACE [None]
  - THROAT TIGHTNESS [None]
  - URTICARIA [None]
